FAERS Safety Report 14744650 (Version 2)
Quarter: 2018Q2

REPORT INFORMATION
  Report Type: Spontaneous
  Country: US (occurrence: US)
  Receive Date: 20180411
  Receipt Date: 20180423
  Transmission Date: 20180711
  Serious: No
  Sender: FDA-Public Use
  Company Number: US-ALK-ABELLO A/S-2018AA000950

PATIENT

DRUGS (16)
  1. STAE BULK 302 AMBROSIA ARTEMISIIFOLIA [Suspect]
     Active Substance: AMBROSIA ARTEMISIIFOLIA POLLEN
     Indication: PRODUCT USED FOR UNKNOWN INDICATION
     Dosage: UNK
     Dates: start: 20180303, end: 20180303
  2. TAE BULK 553 [Suspect]
     Active Substance: ALLERGENIC EXTRACTS
     Indication: PRODUCT USED FOR UNKNOWN INDICATION
     Dosage: UNK
     Dates: start: 20180303, end: 20180303
  3. DAE BULK 503 [Suspect]
     Active Substance: DERMATOPHAGOIDES PTERONYSSINUS
     Indication: PRODUCT USED FOR UNKNOWN INDICATION
     Dosage: UNK
     Dates: start: 20180303, end: 20180303
  4. TAE BULK 405 [Suspect]
     Active Substance: ASPERGILLUS FUMIGATUS
     Indication: PRODUCT USED FOR UNKNOWN INDICATION
     Dosage: UNK
     Dates: start: 20180303, end: 20180303
  5. TAE BULK 157 ACER NEGUNDO [Suspect]
     Active Substance: ACER NEGUNDO POLLEN
     Indication: PRODUCT USED FOR UNKNOWN INDICATION
     Dosage: UNK
     Dates: start: 20180303, end: 20180303
  6. TAE BULK 342 [Suspect]
     Active Substance: PLANTAGO LANCEOLATA POLLEN
     Indication: PRODUCT USED FOR UNKNOWN INDICATION
     Dosage: UNK
     Dates: start: 20180303, end: 20180303
  7. TAE BULK 823 PERIPLANETA AMERICANA [Suspect]
     Active Substance: PERIPLANETA AMERICANA
     Indication: PRODUCT USED FOR UNKNOWN INDICATION
     Dosage: UNK
     Dates: start: 20180303, end: 20180303
  8. TAE BULK 1166 PLATANUS OCCIDENTALIS [Suspect]
     Active Substance: PLATANUS OCCIDENTALIS POLLEN
     Indication: PRODUCT USED FOR UNKNOWN INDICATION
     Dosage: UNK
     Dates: start: 20180303, end: 20180303
  9. TAE BULK 402 [Suspect]
     Active Substance: ALTERNARIA ALTERNATA
     Indication: PRODUCT USED FOR UNKNOWN INDICATION
     Dosage: UNK
     Dates: start: 20180303, end: 20180303
  10. TAE BULK 1208 SOLIDAGO CANADENSIS [Suspect]
     Active Substance: SOLIDAGO CANADENSIS POLLEN
     Indication: PRODUCT USED FOR UNKNOWN INDICATION
     Dosage: UNK
     Dates: start: 20180303, end: 20180303
  11. PENICILLIUM NOTATUM [Suspect]
     Active Substance: PENICILLIUM CHRYSOGENUM VAR. CHRYSOGENUM
     Indication: PRODUCT USED FOR UNKNOWN INDICATION
     Dosage: UNK
     Dates: start: 20180303, end: 20180303
  12. TAE BULK 416 [Suspect]
     Active Substance: CLADOSPORIUM CLADOSPORIOIDES
     Indication: PRODUCT USED FOR UNKNOWN INDICATION
     Dosage: UNK
     Dates: start: 20180303, end: 20180303
  13. STAE BULK 238 [Suspect]
     Active Substance: CYNODON DACTYLON POLLEN
     Indication: PRODUCT USED FOR UNKNOWN INDICATION
     Dosage: UNK
     Dates: start: 20180303, end: 20180303
  14. STAE BULK 225 [Suspect]
     Active Substance: PHLEUM PRATENSE POLLEN
     Indication: PRODUCT USED FOR UNKNOWN INDICATION
     Dosage: UNK
     Dates: start: 20180303, end: 20180303
  15. TAE BULK 168 FRAXINUS AMERICANA [Suspect]
     Active Substance: FRAXINUS AMERICANA POLLEN
     Indication: PRODUCT USED FOR UNKNOWN INDICATION
     Dosage: UNK
     Dates: start: 20180303, end: 20180303
  16. TAE BULK 322 CHENOPODIUM ALBUM [Suspect]
     Active Substance: CHENOPODIUM ALBUM POLLEN
     Indication: PRODUCT USED FOR UNKNOWN INDICATION
     Dosage: UNK
     Dates: start: 20180303, end: 20180303

REACTIONS (1)
  - Urticaria [Recovered/Resolved]
